FAERS Safety Report 12950612 (Version 1)
Quarter: 2016Q4

REPORT INFORMATION
  Report Type: Spontaneous
  Country: US (occurrence: US)
  Receive Date: 20161117
  Receipt Date: 20161117
  Transmission Date: 20170207
  Serious: Yes (Other)
  Sender: FDA-Public Use
  Company Number: ALCN2016US007720

PATIENT
  Age: 72 Year
  Sex: Male

DRUGS (2)
  1. DUREZOL [Suspect]
     Active Substance: DIFLUPREDNATE
     Indication: POSTOPERATIVE CARE
     Dosage: 1 GTT, QID
     Route: 047
     Dates: start: 20161102, end: 20161109
  2. ILEVRO [Suspect]
     Active Substance: NEPAFENAC
     Indication: POSTOPERATIVE CARE
     Dosage: 1 GTT, QD
     Route: 047
     Dates: start: 20161102, end: 20161109

REACTIONS (1)
  - Cystoid macular oedema [Unknown]

NARRATIVE: CASE EVENT DATE: 20161109
